FAERS Safety Report 16052680 (Version 1)
Quarter: 2019Q1

REPORT INFORMATION
  Report Type: Spontaneous
  Country: SE (occurrence: SE)
  Receive Date: 20190308
  Receipt Date: 20190308
  Transmission Date: 20190418
  Serious: Yes (Hospitalization)
  Sender: FDA-Public Use
  Company Number: SE-TEVA-2019-SE-1020290

PATIENT
  Age: 21 Year
  Sex: Female

DRUGS (1)
  1. DIMOR [Suspect]
     Active Substance: LOPERAMIDE
     Dosage: ^TAKEN 11-13 DIMOR ^
     Route: 048
     Dates: start: 20180404, end: 20180404

REACTIONS (5)
  - Abdominal pain [Unknown]
  - Nausea [Unknown]
  - Intentional overdose [Unknown]
  - Dyspnoea [Unknown]
  - Chest discomfort [Unknown]

NARRATIVE: CASE EVENT DATE: 20180404
